FAERS Safety Report 6082307-8 (Version None)
Quarter: 2009Q1

REPORT INFORMATION
  Report Type: 
  Country: None (occurrence: None)
  Receive Date: 20090130
  Receipt Date: 20071219
  Transmission Date: 20090719
  Serious: Yes (Hospitalization)
  Sender: FDA-Public Use
  Company Number: 537742

PATIENT
  Age: 60 Year
  Sex: Male

DRUGS (4)
  1. RIBAVIRIN [Suspect]
     Indication: HEPATITIS C
     Dosage: 1000 MG DAILY SUBCUTANEOUS
     Route: 058
  2. INTRON A [Suspect]
     Indication: HEPATITIS C
     Dosage: 3 MILLIONU  DAILY  SUBCUTAENEOUS
     Route: 058
  3. OXYCODONE HCL [Concomitant]
  4. DIAZEPAM [Concomitant]

REACTIONS (1)
  - PANCREATITIS ACUTE [None]
